FAERS Safety Report 12397769 (Version 4)
Quarter: 2016Q2

REPORT INFORMATION
  Report Type: Spontaneous
  Country: US (occurrence: US)
  Receive Date: 20160524
  Receipt Date: 20160627
  Transmission Date: 20160815
  Serious: Yes (Other)
  Sender: FDA-Public Use
  Company Number: US-REGENERON PHARMACEUTICALS, INC.-2016-17397

PATIENT

DRUGS (3)
  1. EYLEA [Suspect]
     Active Substance: AFLIBERCEPT
     Dosage: 0.5 ML MILLILITRE(S), MONTHLY, LAST DOSE
     Route: 031
     Dates: start: 20160514, end: 20160514
  2. EYLEA [Suspect]
     Active Substance: AFLIBERCEPT
     Dosage: 0.5 ML MILLILITRE(S), SINGLE, OS, LAST DOSE PRIOR TO EVENT ONSET
     Route: 031
     Dates: start: 20151120, end: 20151120
  3. EYLEA [Suspect]
     Active Substance: AFLIBERCEPT
     Indication: NEOVASCULAR AGE-RELATED MACULAR DEGENERATION
     Dosage: 0.5 ML MILLILITRE(S), MONTHLY, OS
     Route: 031
     Dates: start: 20150316

REACTIONS (2)
  - Blindness transient [Recovering/Resolving]
  - Non-infectious endophthalmitis [Recovered/Resolved]

NARRATIVE: CASE EVENT DATE: 20160514
